FAERS Safety Report 5203648-X (Version None)
Quarter: 2007Q1

REPORT INFORMATION
  Report Type: 
  Country: None (occurrence: None)
  Receive Date: 20070105
  Receipt Date: 20061227
  Transmission Date: 20070707
  Serious: Yes (Hospitalization)
  Sender: FDA-Public Use
  Company Number: S06-USA-05108-01

PATIENT
  Age: 70 Year
  Sex: Male
  Weight: 61.2356 kg

DRUGS (25)
  1. NAMENDA [Suspect]
     Indication: DEMENTIA
     Dosage: 5 MG BID PO
     Route: 048
     Dates: end: 20061119
  2. FLEET PHOSPHO-SODA (SODIUM PHOSPHATE) [Suspect]
     Dosage: 120 ML QD
     Dates: start: 20061116, end: 20061117
  3. TYLENOL [Concomitant]
  4. ABILIFY (ARIPRIPRAZOLE) [Concomitant]
  5. ASTELIN [Concomitant]
  6. BUMEX [Concomitant]
  7. DEPAKOTE [Concomitant]
  8. FLONASE [Concomitant]
  9. XALATAN [Concomitant]
  10. ESKALITH [Concomitant]
  11. CLARINEX [Concomitant]
  12. SEROQUEL [Concomitant]
  13. EXELON [Concomitant]
  14. VITAMIN E [Concomitant]
  15. LACTULOSE [Concomitant]
  16. LOVENOX [Concomitant]
  17. METAMUCIL (PSYLLIUM) [Concomitant]
  18. ROBITUSSIN (GUAIFENESIN) [Concomitant]
  19. VITAMIN D [Concomitant]
  20. ZANTAC [Concomitant]
  21. NEXIUM [Concomitant]
  22. PEPCID [Concomitant]
  23. HUMIBID LA (GUAIFENESIN) [Concomitant]
  24. HALDOL SOLUTAB [Concomitant]
  25. HYDROCHLOROTHIAZIDE [Concomitant]

REACTIONS (2)
  - HYPERNATRAEMIA [None]
  - PANCREATITIS [None]
